FAERS Safety Report 12572174 (Version 4)
Quarter: 2016Q4

REPORT INFORMATION
  Report Type: Report from Study
  Country: US (occurrence: US)
  Receive Date: 20160719
  Receipt Date: 20161027
  Transmission Date: 20170207
  Serious: No
  Sender: FDA-Public Use
  Company Number: PHEH2016US017855

PATIENT
  Age: 60 Year
  Sex: Female

DRUGS (4)
  1. EXTAVIA [Suspect]
     Active Substance: INTERFERON BETA-1B
     Indication: MULTIPLE SCLEROSIS
     Dosage: WEEKS 1-2: 0.0625 MG (0.25 ML), QOD
     Route: 058
  2. EXTAVIA [Suspect]
     Active Substance: INTERFERON BETA-1B
     Dosage: WEEKS 3-4: 0.125 MG (0.5 ML), QOD
     Route: 058
  3. EXTAVIA [Suspect]
     Active Substance: INTERFERON BETA-1B
     Dosage: WEEKS 7+: 0.25 MG (1 ML), QOD
     Route: 058
  4. EXTAVIA [Suspect]
     Active Substance: INTERFERON BETA-1B
     Dosage: WEEKS 5-6: 0.1875 MG (0.75 ML), QOD
     Route: 058

REACTIONS (6)
  - Palpitations [Not Recovered/Not Resolved]
  - Liquid product physical issue [Unknown]
  - Influenza like illness [Unknown]
  - Myalgia [Unknown]
  - Feeling abnormal [Unknown]
  - Bone pain [Unknown]

NARRATIVE: CASE EVENT DATE: 201606
